FAERS Safety Report 5942297-2 (Version None)
Quarter: 2008Q4

REPORT INFORMATION
  Report Type: 
  Country: None (occurrence: None)
  Receive Date: 20081105
  Receipt Date: 20081030
  Transmission Date: 20090506
  Serious: Yes (Hospitalization)
  Sender: FDA-Public Use
  Company Number: FR-ABBOTT-08P-056-0482194-01

PATIENT
  Sex: Male
  Weight: 58 kg

DRUGS (2)
  1. RITONAVIR SOFT GELATIN CAPSULES [Suspect]
     Indication: HIV INFECTION
     Route: 048
     Dates: start: 20080709
  2. DARUNAVIR [Concomitant]
     Indication: HIV INFECTION
     Route: 048
     Dates: start: 20080709

REACTIONS (4)
  - ABNORMAL BEHAVIOUR [None]
  - DRUG TOXICITY [None]
  - LUNG INFECTION [None]
  - RESPIRATORY DISTRESS [None]
